FAERS Safety Report 4625137-3 (Version None)
Quarter: 2005Q2

REPORT INFORMATION
  Report Type: 
  Country: None (occurrence: None)
  Receive Date: 20050325
  Receipt Date: 20041206
  Transmission Date: 20051028
  Serious: No
  Sender: FDA-Public Use
  Company Number: US_0412109249

PATIENT
  Age: 56 Year
  Sex: Female

DRUGS (2)
  1. FORTEO [Suspect]
  2. CYANOCOBALAMIN [Concomitant]

REACTIONS (4)
  - CHEST PAIN [None]
  - INJECTION SITE IRRITATION [None]
  - NAUSEA [None]
  - NERVOUSNESS [None]
